FAERS Safety Report 5170681-6 (Version None)
Quarter: 2006Q4

REPORT INFORMATION
  Report Type: 
  Country: None (occurrence: None)
  Receive Date: 20060919
  Receipt Date: 20060712
  Transmission Date: 20070319
  Serious: No
  Sender: FDA-Public Use
  Company Number: 2006US001516

PATIENT
  Age: 52 Year
  Sex: Female

DRUGS (2)
  1. VESICARE [Suspect]
     Indication: HYPERTONIC BLADDER
     Dosage: 5 MG, ORAL
     Route: 048
     Dates: end: 20060713
  2. HYOSCYAINE (HYOSCYAMINE) [Concomitant]

REACTIONS (2)
  - DRY EYE [None]
  - VISION BLURRED [None]
